FAERS Safety Report 21665304 (Version 1)
Quarter: 2022Q4

REPORT INFORMATION
  Report Type: Spontaneous
  Country: US (occurrence: US)
  Receive Date: 20221201
  Receipt Date: 20221201
  Transmission Date: 20230112
  Serious: Yes (Hospitalization)
  Sender: FDA-Public Use
  Company Number: US-STRIDES ARCOLAB LIMITED-2022SP013831

PATIENT
  Age: 38 Year
  Sex: Male

DRUGS (12)
  1. IBUPROFEN [Suspect]
     Active Substance: IBUPROFEN
     Indication: Meralgia paraesthetica
     Dosage: UNK
     Route: 065
  2. MORPHINE SULFATE [Suspect]
     Active Substance: MORPHINE SULFATE
     Indication: Meralgia paraesthetica
     Dosage: 30 MILLIGRAM, BID (EXTENDED RELEASE)
     Route: 065
  3. OXYCODONE [Suspect]
     Active Substance: OXYCODONE
     Indication: Meralgia paraesthetica
     Dosage: 30 MILLIGRAM (IMMEDIATE RELEASE)
     Route: 065
  4. GABAPENTIN [Suspect]
     Active Substance: GABAPENTIN
     Indication: Meralgia paraesthetica
     Dosage: 600 MILLIGRAM, TID (THREE TIMES DAILY)
     Route: 065
  5. GABAPENTIN [Suspect]
     Active Substance: GABAPENTIN
     Dosage: 900 MILLIGRAM, TID (THREE TIMES DAILY )
     Route: 065
  6. GABAPENTIN [Suspect]
     Active Substance: GABAPENTIN
     Dosage: UNK (PREVIOUS DOSE WITH HIS OPIOID REGIMEN)
     Route: 065
  7. AMITRIPTYLINE [Suspect]
     Active Substance: AMITRIPTYLINE
     Indication: Meralgia paraesthetica
     Dosage: UNK
     Route: 065
  8. LIDOCAINE [Suspect]
     Active Substance: LIDOCAINE
     Indication: Meralgia paraesthetica
     Dosage: UNK FIRST (LFCN) BLOCKS )
     Route: 065
  9. LIDOCAINE [Suspect]
     Active Substance: LIDOCAINE
     Dosage: UNK SECOND (LFCN) BLOCKS )
     Route: 065
  10. LIDOCAINE [Suspect]
     Active Substance: LIDOCAINE
     Dosage: UNK THIRD AND FINAL (LFCN BLOCK )
     Route: 065
  11. BUPIVACAINE [Suspect]
     Active Substance: BUPIVACAINE
     Indication: Meralgia paraesthetica
     Dosage: UNK FIRST (LFCN) BLOCKS
     Route: 065
  12. KENALOG [Suspect]
     Active Substance: TRIAMCINOLONE ACETONIDE
     Indication: Meralgia paraesthetica
     Dosage: UNK (SECOND LFCN BLOCK )
     Route: 065

REACTIONS (3)
  - Drug ineffective [Unknown]
  - Adverse drug reaction [Unknown]
  - Off label use [Unknown]
